FAERS Safety Report 8138824-X (Version None)
Quarter: 2012Q1

REPORT INFORMATION
  Report Type: 
  Country: None (occurrence: None)
  Receive Date: 20120215
  Receipt Date: 20110118
  Transmission Date: 20120608
  Serious: No
  Sender: FDA-Public Use
  Company Number: US-ASTRAZENECA-2011SE03498

PATIENT
  Age: 85 Year
  Sex: Female

DRUGS (1)
  1. FELODIPINE [Suspect]
     Indication: HYPERTENSION
     Route: 048
     Dates: start: 20110101

REACTIONS (2)
  - SENSORY DISTURBANCE [None]
  - PRURITUS [None]
